FAERS Safety Report 4541838-X (Version None)
Quarter: 2004Q4

REPORT INFORMATION
  Report Type: 
  Country: None (occurrence: None)
  Receive Date: 20041223
  Receipt Date: 20041012
  Transmission Date: 20050328
  Serious: No
  Sender: FDA-Public Use
  Company Number: US-JNJFOC-20041004672

PATIENT
  Age: 25 Year
  Sex: Female
  Weight: 77.1115 kg

DRUGS (2)
  1. ORTHO EVRA [Suspect]
     Indication: CONTRACEPTION
     Dosage: 1 DOSE(S), 3 IN 4 WEEK, ORAL
     Route: 048
     Dates: start: 20040401
  2. E-MYCIN (ERYTHROMYCIN) [Concomitant]

REACTIONS (2)
  - APPLICATION SITE REACTION [None]
  - DRY SKIN [None]
